FAERS Safety Report 9105824 (Version 3)
Quarter: 2013Q1

REPORT INFORMATION
  Report Type: Spontaneous
  Country: DE (occurrence: DE)
  Receive Date: 20130220
  Receipt Date: 20130305
  Transmission Date: 20140127
  Serious: Yes (Other)
  Sender: FDA-Public Use
  Company Number: DE-INCYTE CORPORATION-2013IN000308

PATIENT
  Age: 51 Year
  Sex: Female

DRUGS (3)
  1. JAKAVI [Suspect]
     Indication: MYELOFIBROSIS
     Dosage: 15 MG, BID
     Route: 065
     Dates: start: 201210
  2. JAKAVI [Suspect]
     Indication: SPLENOMEGALY
  3. JAKAVI [Suspect]
     Indication: PORTAL VEIN THROMBOSIS

REACTIONS (1)
  - Haemolysis [Unknown]
